FAERS Safety Report 9109174 (Version 1)
Quarter: 2013Q1

REPORT INFORMATION
  Report Type: Spontaneous
  Country: US (occurrence: US)
  Receive Date: 20130222
  Receipt Date: 20130222
  Transmission Date: 20140127
  Serious: No
  Sender: FDA-Public Use
  Company Number: US-009507513-1302USA010162

PATIENT
  Age: 26 Year
  Sex: Female

DRUGS (2)
  1. NEXPLANON [Suspect]
     Indication: CONTRACEPTION
     Dosage: UNK
     Route: 059
     Dates: start: 20130204, end: 20130205
  2. PROZAC [Concomitant]

REACTIONS (2)
  - Unintended pregnancy [Unknown]
  - Anxiety [Unknown]
